FAERS Safety Report 15719305 (Version 5)
Quarter: 2022Q3

REPORT INFORMATION
  Report Type: Spontaneous
  Country: US (occurrence: US)
  Receive Date: 20181213
  Receipt Date: 20220817
  Transmission Date: 20221027
  Serious: Yes (Other)
  Sender: FDA-Public Use
  Company Number: US-PFIZER INC-2018510026

PATIENT
  Age: 52 Year
  Sex: Female
  Weight: 82 kg

DRUGS (10)
  1. PROTONIX [Suspect]
     Active Substance: PANTOPRAZOLE SODIUM
     Indication: Vomiting
     Dosage: 40 MG, 2X/DAY
  2. PROTONIX [Suspect]
     Active Substance: PANTOPRAZOLE SODIUM
     Indication: Gastrooesophageal reflux disease
     Dosage: DAILY (1 - 2 DAILY)
  3. PROTONIX [Suspect]
     Active Substance: PANTOPRAZOLE SODIUM
     Indication: Impaired gastric emptying
     Dosage: 40 MG, 1X/DAY(1 HOUR BEFORE BREAKFAST)
     Route: 048
     Dates: start: 20180913
  4. PROTONIX [Suspect]
     Active Substance: PANTOPRAZOLE SODIUM
     Indication: Gastrointestinal bacterial overgrowth
     Dosage: 40 MG, ONE TO TWO TIMES A DAY
  5. PROTONIX [Suspect]
     Active Substance: PANTOPRAZOLE SODIUM
     Indication: Nausea
  6. PROTONIX [Suspect]
     Active Substance: PANTOPRAZOLE SODIUM
     Indication: Oesophagogastric fundoplasty
  7. CLARITHROMYCIN [Concomitant]
     Active Substance: CLARITHROMYCIN
     Dosage: UNK
  8. LACTULOSE [Concomitant]
     Active Substance: LACTULOSE
     Dosage: UNK
  9. LEVOTHYROXINE [Concomitant]
     Active Substance: LEVOTHYROXINE
     Dosage: UNK
  10. ONDANSETRON [Concomitant]
     Active Substance: ONDANSETRON
     Dosage: UNK

REACTIONS (21)
  - Choking [Unknown]
  - Abdominal hernia [Unknown]
  - Umbilical hernia [Unknown]
  - Incisional hernia [Unknown]
  - Tooth extraction [Unknown]
  - Gastric operation [Unknown]
  - Drug ineffective [Unknown]
  - Product prescribing error [Unknown]
  - Suspected counterfeit product [Unknown]
  - Nausea [Unknown]
  - Vomiting [Unknown]
  - Gastrointestinal motility disorder [Unknown]
  - Mastication disorder [Unknown]
  - Drug hypersensitivity [Unknown]
  - Product physical issue [Unknown]
  - Headache [Unknown]
  - Dysphagia [Unknown]
  - Retching [Unknown]
  - Abdominal discomfort [Unknown]
  - Condition aggravated [Unknown]
  - Infection [Unknown]

NARRATIVE: CASE EVENT DATE: 20181231
